FAERS Safety Report 7778970-3 (Version None)
Quarter: 2011Q3

REPORT INFORMATION
  Report Type: 
  Country: None (occurrence: None)
  Receive Date: 20110926
  Receipt Date: 20110912
  Transmission Date: 20111222
  Serious: Yes (Death, Hospitalization, Other)
  Sender: FDA-Public Use
  Company Number: US-ELI_LILLY_AND_COMPANY-US201109006440

PATIENT
  Age: 55 Year
  Sex: Female

DRUGS (3)
  1. CARBOPLATIN [Concomitant]
     Dosage: UNK, ON DAY 1 , EVERY 3 WEEKS FOR 4 CYCLES
  2. ZOLEDRONIC ACID [Concomitant]
     Dosage: 4 MG, EVERY 3 WEEKS
     Route: 042
  3. GEMCITABINE HYDROCHLORIDE [Suspect]
     Indication: LUNG SQUAMOUS CELL CARCINOMA STAGE UNSPECIFIED
     Dosage: 1000 MG/M2, DAY 1 AND 8 EVERY 3WEEKS

REACTIONS (2)
  - NEOPLASM PROGRESSION [None]
  - ORGANISING PNEUMONIA [None]
